FAERS Safety Report 4581740-0 (Version None)
Quarter: 2005Q1

REPORT INFORMATION
  Report Type: 
  Country: None (occurrence: None)
  Receive Date: 20050214
  Receipt Date: 20040223
  Transmission Date: 20050727
  Serious: No
  Sender: FDA-Public Use
  Company Number: US-GLAXOSMITHKLINE-A0499438A

PATIENT
  Age: 40 Year
  Sex: Female

DRUGS (3)
  1. LAMICTAL [Suspect]
     Indication: BIPOLAR DISORDER
     Dosage: 75MG PER DAY
     Route: 048
     Dates: start: 20031201
  2. TEGRETOL [Concomitant]
  3. KLONOPIN [Concomitant]

REACTIONS (6)
  - ERYTHEMA [None]
  - LYMPHADENOPATHY [None]
  - PYREXIA [None]
  - RASH [None]
  - STOMATITIS [None]
  - SWELLING FACE [None]
